FAERS Safety Report 18558515 (Version 1)
Quarter: 2020Q4

REPORT INFORMATION
  Report Type: Spontaneous
  Country: US (occurrence: US)
  Receive Date: 20201127
  Receipt Date: 20201127
  Transmission Date: 20210114
  Serious: Yes (Hospitalization)
  Sender: FDA-Public Use
  Company Number: None

PATIENT
  Age: 31 Year
  Sex: Female
  Weight: 65.77 kg

DRUGS (3)
  1. PRENATAL VITAMINS [Concomitant]
     Active Substance: VITAMINS
  2. ALLERGY EYE DROPS [Concomitant]
     Active Substance: NAPHAZOLINE HYDROCHLORIDE\PHENIRAMINE MALEATE
  3. MIRENA [Suspect]
     Active Substance: LEVONORGESTREL
     Dates: start: 20191008, end: 20201126

REACTIONS (4)
  - Embedded device [None]
  - Vaginal haemorrhage [None]
  - Infection [None]
  - Vaginal odour [None]

NARRATIVE: CASE EVENT DATE: 20201126
